FAERS Safety Report 14475793 (Version 1)
Quarter: 2018Q1

REPORT INFORMATION
  Report Type: Spontaneous
  Country: US (occurrence: US)
  Receive Date: 20180201
  Receipt Date: 20180201
  Transmission Date: 20180509
  Serious: Yes (Death)
  Sender: FDA-Public Use
  Company Number: None

PATIENT
  Age: 66 Year
  Sex: Female
  Weight: 78 kg

DRUGS (10)
  1. VANCOMYCIN [Suspect]
     Active Substance: VANCOMYCIN
     Dates: start: 20171127
  2. NATURALYTE ACID [Concomitant]
  3. DOXERCALCIFEROL. [Concomitant]
     Active Substance: DOXERCALCIFEROL
  4. POTASSIUM [Concomitant]
     Active Substance: POTASSIUM
  5. HEPARIN SODIUM. [Concomitant]
     Active Substance: HEPARIN SODIUM
  6. VANCOMYCIN 1 GRAM [Suspect]
     Active Substance: VANCOMYCIN
     Indication: INCISIONAL DRAINAGE
     Route: 042
     Dates: start: 20171127
  7. NORMAL SALINE [Concomitant]
     Active Substance: SODIUM CHLORIDE
  8. SODIUM BICARBONATE. [Concomitant]
     Active Substance: SODIUM BICARBONATE
  9. CALCIUM [Concomitant]
     Active Substance: CALCIUM
  10. IRON SUCROSE [Concomitant]
     Active Substance: IRON SUCROSE

REACTIONS (6)
  - Therapy cessation [None]
  - Foaming at mouth [None]
  - Blood pressure decreased [None]
  - Vomiting [None]
  - Malaise [None]
  - Respiratory arrest [None]

NARRATIVE: CASE EVENT DATE: 20171127
